FAERS Safety Report 5577906-3 (Version None)
Quarter: 2007Q4

REPORT INFORMATION
  Report Type: 
  Country: None (occurrence: None)
  Receive Date: 20071227
  Receipt Date: 20071216
  Transmission Date: 20080405
  Serious: Yes (Death, Hospitalization)
  Sender: FDA-Public Use
  Company Number: 2007BI018881

PATIENT
  Age: 36 Year
  Sex: Female

DRUGS (1)
  1. NATALIZUMAB [Suspect]
     Indication: MULTIPLE SCLEROSIS
     Dosage: 300 MG; QM; IV
     Route: 042
     Dates: start: 20061212, end: 20070810

REACTIONS (21)
  - ADRENAL INSUFFICIENCY [None]
  - ANAEMIA [None]
  - CEREBRAL INFARCTION [None]
  - DEMYELINATION [None]
  - DEPRESSION [None]
  - DISEASE PROGRESSION [None]
  - ESCHERICHIA INFECTION [None]
  - FUNGAL INFECTION [None]
  - HYPOTENSION [None]
  - INSOMNIA [None]
  - INSULIN RESISTANCE [None]
  - MULTIPLE SCLEROSIS RELAPSE [None]
  - MUSCLE SPASTICITY [None]
  - NEUROGENIC BLADDER [None]
  - PNEUMONIA [None]
  - PROGRESSIVE MULTIFOCAL LEUKOENCEPHALOPATHY [None]
  - QUADRIPLEGIA [None]
  - RESPIRATORY ALKALOSIS [None]
  - RESPIRATORY FAILURE [None]
  - SEPSIS [None]
  - URINARY RETENTION [None]
